FAERS Safety Report 22053460 (Version 1)
Quarter: 2023Q1

REPORT INFORMATION
  Report Type: Report from Study
  Country: FR (occurrence: FR)
  Receive Date: 20230302
  Receipt Date: 20230302
  Transmission Date: 20230418
  Serious: Yes (Death, Hospitalization)
  Sender: FDA-Public Use
  Company Number: FR-SA-SAC20220413001892

PATIENT
  Age: 65 Year
  Sex: Female
  Weight: 70 kg

DRUGS (13)
  1. DOCETAXEL [Suspect]
     Active Substance: DOCETAXEL
     Indication: Lung adenocarcinoma
     Dosage: 75 MG/M2, QOW  INFUSION RATE:  87.5 MG/H
     Route: 042
     Dates: start: 20220112, end: 20220112
  2. DOCETAXEL [Suspect]
     Active Substance: DOCETAXEL
     Dosage: 60 MG/M2, QOW, INFUSION RATE:  100 MG/H
     Route: 042
     Dates: start: 20220407, end: 20220407
  3. KARDEGIC [Concomitant]
     Active Substance: ASPIRIN DL-LYSINE
     Dosage: UNK
     Route: 048
     Dates: start: 201912
  4. COVERAM [Concomitant]
     Active Substance: AMLODIPINE\PERINDOPRIL
     Dosage: UNK
     Route: 048
     Dates: start: 201912
  5. DOLIPRANE [Concomitant]
     Active Substance: ACETAMINOPHEN
     Dosage: UNK
     Route: 048
     Dates: start: 201912
  6. EMEND [Concomitant]
     Active Substance: APREPITANT
     Indication: Prophylaxis
     Dosage: UNK
     Route: 048
     Dates: start: 20220112
  7. ONDANSETRON [Concomitant]
     Active Substance: ONDANSETRON
     Indication: Prophylaxis
     Dosage: UNK
     Route: 048
     Dates: start: 20220112
  8. ZOLPIDEM [Concomitant]
     Active Substance: ZOLPIDEM TARTRATE
     Dosage: UNK
     Route: 048
     Dates: start: 202201
  9. OXYGEN [Concomitant]
     Active Substance: OXYGEN
     Dosage: UNK
     Route: 055
     Dates: start: 20220411
  10. CEFOTAXIME [Concomitant]
     Active Substance: CEFOTAXIME SODIUM
     Dosage: UNK
     Route: 042
     Dates: start: 20220411, end: 20220414
  11. SPIRAMYCIN [Concomitant]
     Active Substance: SPIRAMYCIN
     Dosage: UNK
     Dates: start: 20220411, end: 20220414
  12. NEURONTIN [Concomitant]
     Active Substance: GABAPENTIN
     Dosage: UNK
     Route: 048
     Dates: start: 20220407
  13. GRANULOCYTES [Concomitant]
     Active Substance: GRANULOCYTES
     Indication: Prophylaxis
     Dosage: UNK
     Route: 058
     Dates: start: 20220408, end: 20220410

REACTIONS (1)
  - Influenza [Fatal]

NARRATIVE: CASE EVENT DATE: 20220411
